FAERS Safety Report 18917592 (Version 3)
Quarter: 2021Q2

REPORT INFORMATION
  Report Type: Spontaneous
  Country: US (occurrence: US)
  Receive Date: 20210219
  Receipt Date: 20210409
  Transmission Date: 20210717
  Serious: Yes (Hospitalization, Other)
  Sender: FDA-Public Use
  Company Number: US-LUNDBECK-DKLU3028627

PATIENT
  Age: 58 Year
  Sex: Female

DRUGS (2)
  1. NORTHERA [Suspect]
     Active Substance: DROXIDOPA
     Indication: OSTEOARTHRITIS
  2. NORTHERA [Suspect]
     Active Substance: DROXIDOPA
     Indication: ORTHOSTATIC HYPOTENSION
     Route: 048
     Dates: start: 202007

REACTIONS (6)
  - Wound infection staphylococcal [Unknown]
  - Toe amputation [Unknown]
  - Cognitive disorder [Not Recovered/Not Resolved]
  - Inappropriate schedule of product administration [Not Recovered/Not Resolved]
  - Syncope [Not Recovered/Not Resolved]
  - Wound [Recovered/Resolved with Sequelae]

NARRATIVE: CASE EVENT DATE: 202102
